FAERS Safety Report 23581043 (Version 2)
Quarter: 2024Q1

REPORT INFORMATION
  Report Type: Report from Study
  Country: JP (occurrence: None)
  Receive Date: 20240229
  Receipt Date: 20240329
  Transmission Date: 20240410
  Serious: Yes (Other)
  Sender: FDA-Public Use
  Company Number: 2024A044953

PATIENT

DRUGS (5)
  1. IMFINZI [Suspect]
     Active Substance: DURVALUMAB
     Indication: Bile duct cancer
     Dosage: DOSE UNKNOWN
     Route: 042
     Dates: start: 20231013
  2. GEMCITABINE HYDROCHLORIDE/CARBOPLATIN [Concomitant]
     Indication: Bile duct cancer
     Dosage: DOSE UNKNOWN
     Route: 065
  3. GEMCITABINE HYDROCHLORIDE/CARBOPLATIN [Concomitant]
     Indication: Bile duct cancer
     Dosage: DOSE UNKNOWN
     Route: 065
  4. CISPLATIN [Concomitant]
     Active Substance: CISPLATIN
     Indication: Bile duct cancer
     Dosage: DOSE UNKNOWN
     Route: 065
  5. CISPLATIN [Concomitant]
     Active Substance: CISPLATIN
     Indication: Bile duct cancer
     Dosage: DOSE UNKNOWN
     Route: 065

REACTIONS (2)
  - Liver abscess [Unknown]
  - Cholecystitis [Unknown]
